FAERS Safety Report 7792645-6 (Version None)
Quarter: 2011Q4

REPORT INFORMATION
  Report Type: 
  Country: None (occurrence: None)
  Receive Date: 20111003
  Receipt Date: 20110921
  Transmission Date: 20120403
  Serious: Yes (Hospitalization)
  Sender: FDA-Public Use
  Company Number: US-ELI_LILLY_AND_COMPANY-US201109006967

PATIENT
  Sex: Female

DRUGS (1)
  1. FORTEO [Suspect]
     Route: 065

REACTIONS (4)
  - BONE DISORDER [None]
  - BACK PAIN [None]
  - HYPOAESTHESIA [None]
  - OSTEOPOROSIS [None]
